FAERS Safety Report 6945014-2 (Version None)
Quarter: 2010Q3

REPORT INFORMATION
  Report Type: 
  Country: None (occurrence: None)
  Receive Date: 20100827
  Receipt Date: 20100816
  Transmission Date: 20110219
  Serious: Yes (Other)
  Sender: FDA-Public Use
  Company Number: PHHY2009TW60867

PATIENT
  Sex: Female

DRUGS (2)
  1. GLEEVEC [Suspect]
     Indication: CHRONIC MYELOID LEUKAEMIA
     Dosage: LESS THAN 400 MG
  2. GLEEVEC [Suspect]
     Dosage: 200 MG, UNK
     Route: 048

REACTIONS (4)
  - ASTHENIA [None]
  - CATARACT OPERATION [None]
  - DECREASED APPETITE [None]
  - HEADACHE [None]
